FAERS Safety Report 9681731 (Version 2)
Quarter: 2014Q1

REPORT INFORMATION
  Report Type: Spontaneous
  Country: FR (occurrence: FR)
  Receive Date: 20131111
  Receipt Date: 20140102
  Transmission Date: 20141002
  Serious: Yes (Other)
  Sender: FDA-Public Use
  Company Number: FR-BAYER-2013-136411

PATIENT
  Age: 25 Year
  Sex: Female

DRUGS (1)
  1. MIRENA [Suspect]
     Dosage: 20 ?G, CONT
     Route: 015

REACTIONS (5)
  - Pregnancy with contraceptive device [Recovered/Resolved]
  - Haemorrhage in pregnancy [None]
  - Device dislocation [Not Recovered/Not Resolved]
  - Drug ineffective [None]
  - Amenorrhoea [Recovered/Resolved]
